FAERS Safety Report 19413218 (Version 1)
Quarter: 2021Q2

REPORT INFORMATION
  Report Type: Spontaneous
  Country: GB (occurrence: GB)
  Receive Date: 20210614
  Receipt Date: 20210614
  Transmission Date: 20210717
  Serious: Yes (Disabling, Other)
  Sender: FDA-Public Use
  Company Number: GB-PFIZER INC-2021621809

PATIENT
  Age: 31 Year
  Sex: Male
  Weight: 110 kg

DRUGS (8)
  1. ASTRAZENECA COVID?19 VACCINE [Suspect]
     Active Substance: AZD-1222
     Indication: IMMUNISATION
     Dosage: FIRST DOSE, SINGLE
     Dates: start: 20210326, end: 20210326
  2. AMITRIPTYLINE [Concomitant]
     Active Substance: AMITRIPTYLINE
     Indication: SYRINGOMYELIA
     Dosage: UNK
     Dates: start: 20200407
  3. AMOXICILLIN. [Concomitant]
     Active Substance: AMOXICILLIN
     Dosage: UNK
  4. MOMETASONE [Concomitant]
     Active Substance: MOMETASONE
     Indication: TINNITUS
     Dosage: UNK
  5. PARACETAMOL [Concomitant]
     Active Substance: ACETAMINOPHEN
     Dosage: UNK
  6. SERTRALINE [Concomitant]
     Active Substance: SERTRALINE HYDROCHLORIDE
     Indication: DEPRESSION
     Dosage: UNK
     Dates: start: 20200407
  7. TEVA UK LANSOPRAZOLE [Concomitant]
     Active Substance: LANSOPRAZOLE
     Indication: DYSPEPSIA
     Dosage: UNK
     Dates: start: 20210206
  8. DEPO?MEDRONE [Suspect]
     Active Substance: METHYLPREDNISOLONE
     Indication: SYRINGOMYELIA
     Dosage: UNK
     Dates: start: 20200407

REACTIONS (9)
  - Chest pain [Unknown]
  - Pyrexia [Unknown]
  - Ear infection [Not Recovered/Not Resolved]
  - Lethargy [Unknown]
  - Pneumonia [Unknown]
  - Cough [Unknown]
  - Lower respiratory tract infection [Not Recovered/Not Resolved]
  - Pharyngitis [Not Recovered/Not Resolved]
  - Sinusitis [Not Recovered/Not Resolved]

NARRATIVE: CASE EVENT DATE: 20210328
